FAERS Safety Report 18177585 (Version 4)
Quarter: 2020Q4

REPORT INFORMATION
  Report Type: Report from Study
  Country: LB (occurrence: LB)
  Receive Date: 20200820
  Receipt Date: 20201021
  Transmission Date: 20210113
  Serious: Yes (Death, Hospitalization, Other)
  Sender: FDA-Public Use
  Company Number: NVSC2020LB225266

PATIENT
  Age: 60 Year
  Sex: Male
  Weight: 68 kg

DRUGS (4)
  1. JAKAVI [Suspect]
     Active Substance: RUXOLITINIB
     Indication: MYELOPROLIFERATIVE NEOPLASM
     Dosage: 2 DF, QD
     Route: 048
     Dates: start: 201908, end: 202007
  2. REVOLADE [Suspect]
     Active Substance: ELTROMBOPAG
     Indication: GRAFT VERSUS HOST DISEASE
     Dosage: UNK
     Route: 065
     Dates: end: 2019
  3. JADENU [Suspect]
     Active Substance: DEFERASIROX
     Indication: THALASSAEMIA
     Dosage: 3 DF, QD
     Route: 048
     Dates: start: 201901, end: 202007
  4. REVOLADE [Suspect]
     Active Substance: ELTROMBOPAG
     Dosage: 50 MG, QD (2 TABS, 20 DAYS AGO)
     Route: 065
     Dates: start: 20200626

REACTIONS (12)
  - Cardiac arrest [Fatal]
  - Epistaxis [Recovered/Resolved]
  - Rectal haemorrhage [Recovering/Resolving]
  - Off label use [Unknown]
  - Cutaneous T-cell lymphoma [Unknown]
  - Myelosuppression [Unknown]
  - Headache [Recovered/Resolved]
  - Haemoglobin decreased [Unknown]
  - Thrombocytopenia [Unknown]
  - Platelet count decreased [Unknown]
  - Blood smear test abnormal [Unknown]
  - Anaemia [Unknown]

NARRATIVE: CASE EVENT DATE: 20200809
